FAERS Safety Report 11211316 (Version 1)
Quarter: 2015Q2

REPORT INFORMATION
  Report Type: Spontaneous
  Country: US (occurrence: None)
  Receive Date: 20150622
  Receipt Date: 20150622
  Transmission Date: 20150821
  Serious: No
  Sender: FDA-Public Use
  Company Number: None

PATIENT
  Age: 54 Year
  Sex: Male
  Weight: 89 kg

DRUGS (1)
  1. CROFAB [Suspect]
     Active Substance: CROTALIDAE POLYVALENT IMMUNE FAB (OVINE)
     Indication: SNAKE BITE
     Dosage: 2 VIALS Q 6HRS
     Route: 042
     Dates: start: 20150616, end: 20150617

REACTIONS (2)
  - Swelling [None]
  - Pain [None]

NARRATIVE: CASE EVENT DATE: 20150617
